FAERS Safety Report 7190589-4 (Version None)
Quarter: 2010Q4

REPORT INFORMATION
  Report Type: 
  Country: None (occurrence: None)
  Receive Date: 20101223
  Receipt Date: 20101222
  Transmission Date: 20110411
  Serious: Yes (Other)
  Sender: FDA-Public Use
  Company Number: CA-JNJFOC-20101205817

PATIENT
  Sex: Male
  Weight: 2.6 kg

DRUGS (6)
  1. KETOCONAZOLE [Suspect]
     Indication: DRUG EXPOSURE DURING PREGNANCY
     Route: 064
  2. INSULIN [Suspect]
     Indication: DRUG EXPOSURE DURING PREGNANCY
     Route: 064
  3. METHYLDOPA [Suspect]
     Indication: DRUG EXPOSURE DURING PREGNANCY
     Route: 064
  4. NIFEDIPINE [Suspect]
     Indication: DRUG EXPOSURE DURING PREGNANCY
     Route: 064
  5. LABETALOL [Suspect]
     Indication: DRUG EXPOSURE DURING PREGNANCY
     Route: 064
  6. CORTICOSTEROIDS [Suspect]
     Indication: DRUG EXPOSURE DURING PREGNANCY
     Dosage: TAPERING DOSES OF CORTICISTEROIDS.
     Route: 064

REACTIONS (2)
  - HYPOGLYCAEMIA NEONATAL [None]
  - PREMATURE BABY [None]
